FAERS Safety Report 5440028-6 (Version None)
Quarter: 2007Q3

REPORT INFORMATION
  Report Type: 
  Country: None (occurrence: None)
  Receive Date: 20070831
  Receipt Date: 20070824
  Transmission Date: 20080115
  Serious: No
  Sender: FDA-Public Use
  Company Number: A0675606A

PATIENT

DRUGS (2)
  1. ALLI [Suspect]
  2. FIBER [Concomitant]

REACTIONS (6)
  - ABDOMINAL DISTENSION [None]
  - ARTHROPATHY [None]
  - ASTHENIA [None]
  - BLOOD GLUCOSE DECREASED [None]
  - MOVEMENT DISORDER [None]
  - WEIGHT INCREASED [None]
